FAERS Safety Report 5663328-3 (Version None)
Quarter: 2008Q1

REPORT INFORMATION
  Report Type: 
  Country: None (occurrence: None)
  Receive Date: 20080307
  Receipt Date: 20080226
  Transmission Date: 20080703
  Serious: Yes (Other)
  Sender: FDA-Public Use
  Company Number: 144-21880-08021511

PATIENT
  Sex: Male

DRUGS (3)
  1. REVLIMID [Suspect]
     Indication: 5Q-SYNDROME
     Dosage: 10 MG, EVERY 48 HOURS, ORAL; 10 MG, EVERY 72 HOURS FOR 28 DAY CYCLE, ORAL
     Route: 048
     Dates: start: 20071118
  2. NEUPOGEN [Concomitant]
  3. ARANESP [Concomitant]

REACTIONS (13)
  - ANXIETY [None]
  - CONJUNCTIVITIS [None]
  - EYE PRURITUS [None]
  - HAEMOGLOBIN DECREASED [None]
  - HYPOACUSIS [None]
  - LACRIMATION INCREASED [None]
  - NEUTROPHIL COUNT DECREASED [None]
  - PERIORBITAL OEDEMA [None]
  - PLATELET COUNT DECREASED [None]
  - PRURITUS [None]
  - SKIN LESION [None]
  - URTICARIA [None]
  - VERTIGO [None]
